FAERS Safety Report 4670120-5 (Version None)
Quarter: 2005Q2

REPORT INFORMATION
  Report Type: 
  Country: None (occurrence: None)
  Receive Date: 20050520
  Receipt Date: 20050514
  Transmission Date: 20051028
  Serious: Yes (Other)
  Sender: FDA-Public Use
  Company Number: 2005074679

PATIENT
  Age: 62 Year
  Sex: Male
  Weight: 94.3482 kg

DRUGS (3)
  1. LIPITOR [Suspect]
     Indication: BLOOD CHOLESTEROL INCREASED
     Dosage: 10 MG (10 MG, 1 IN 1 D), ORAL
     Route: 048
  2. VALIUM [Concomitant]
  3. ARTHROTEC [Concomitant]

REACTIONS (3)
  - BILE DUCT OBSTRUCTION [None]
  - HEPATIC ENZYME INCREASED [None]
  - PANCREATIC CARCINOMA [None]
